FAERS Safety Report 4335421-9 (Version None)
Quarter: 2004Q2

REPORT INFORMATION
  Report Type: 
  Country: None (occurrence: None)
  Receive Date: 20040409
  Receipt Date: 20040330
  Transmission Date: 20050107
  Serious: Yes (Death, Other)
  Sender: FDA-Public Use
  Company Number: JP-BRISTOL-MYERS SQUIBB COMPANY-12554457

PATIENT
  Age: 4 Year
  Sex: Male

DRUGS (3)
  1. VP-16 [Suspect]
     Indication: PRIMITIVE NEUROECTODERMAL TUMOUR
  2. THIOTEPA [Suspect]
     Indication: PRIMITIVE NEUROECTODERMAL TUMOUR
  3. RANIMUSTINE [Suspect]
     Indication: PRIMITIVE NEUROECTODERMAL TUMOUR

REACTIONS (6)
  - DIARRHOEA [None]
  - ENGRAFTMENT SYNDROME [None]
  - HYPONATRAEMIA [None]
  - PULMONARY EMBOLISM [None]
  - THROMBOSIS [None]
  - VOMITING [None]
